FAERS Safety Report 6999575-8 (Version None)
Quarter: 2010Q3

REPORT INFORMATION
  Report Type: 
  Country: None (occurrence: None)
  Receive Date: 20100920
  Receipt Date: 20070529
  Transmission Date: 20110219
  Serious: Yes (Hospitalization)
  Sender: FDA-Public Use
  Company Number: US-ASTRAZENECA-2006UW08089

PATIENT
  Age: 20158 Day
  Sex: Female
  Weight: 68 kg

DRUGS (12)
  1. SEROQUEL [Suspect]
     Indication: BIPOLAR DISORDER
     Route: 048
     Dates: start: 20010101, end: 20040701
  2. SEROQUEL [Suspect]
     Indication: INSOMNIA
     Route: 048
     Dates: start: 20010101, end: 20040701
  3. SEROQUEL [Suspect]
     Route: 048
     Dates: start: 20020701, end: 20020701
  4. SEROQUEL [Suspect]
     Route: 048
     Dates: start: 20020701, end: 20020701
  5. SEROQUEL [Suspect]
     Route: 048
     Dates: start: 20060307
  6. SEROQUEL [Suspect]
     Route: 048
     Dates: start: 20060307
  7. ABILIFY [Concomitant]
  8. SYNTHROID [Concomitant]
     Indication: HYPOTHYROIDISM
     Dates: start: 20020701
  9. LIPITOR [Concomitant]
     Indication: HYPERCHOLESTEROLAEMIA
     Route: 048
     Dates: start: 20020701
  10. PREVACID [Concomitant]
  11. LITHIUM CARBONATE [Concomitant]
  12. REGLAN [Concomitant]
     Indication: ABDOMINAL DISCOMFORT

REACTIONS (5)
  - CHEST PAIN [None]
  - GLUCOSE TOLERANCE IMPAIRED [None]
  - INCREASED APPETITE [None]
  - TYPE 2 DIABETES MELLITUS [None]
  - WEIGHT INCREASED [None]
